FAERS Safety Report 8047256-4 (Version None)
Quarter: 2012Q1

REPORT INFORMATION
  Report Type: 
  Country: None (occurrence: None)
  Receive Date: 20120116
  Receipt Date: 20120104
  Transmission Date: 20120608
  Serious: Yes (Other)
  Sender: FDA-Public Use
  Company Number: CA-ELI_LILLY_AND_COMPANY-CA201201001418

PATIENT
  Age: 93 Year
  Sex: Female

DRUGS (7)
  1. FORTEO [Suspect]
     Indication: OSTEOPOROSIS
     Dosage: 20 UG, QD
     Route: 058
     Dates: start: 20111005
  2. MEMANTINE [Concomitant]
  3. OMEPRAZOLE [Concomitant]
  4. POTASSIUM CHLORIDE [Concomitant]
  5. RAMIPRIL [Concomitant]
  6. VITAMIN D [Concomitant]
  7. CALCIUM [Concomitant]

REACTIONS (1)
  - CEREBROVASCULAR ACCIDENT [None]
